FAERS Safety Report 24273743 (Version 1)
Quarter: 2024Q3

REPORT INFORMATION
  Report Type: Spontaneous
  Country: US (occurrence: US)
  Receive Date: 20240902
  Receipt Date: 20240902
  Transmission Date: 20241017
  Serious: Yes (Other)
  Sender: ASTELLAS
  Company Number: US-ASTELLAS-2024US013645

PATIENT
  Age: 74 Year
  Sex: Female

DRUGS (1)
  1. ENFORTUMAB VEDOTIN [Suspect]
     Active Substance: ENFORTUMAB VEDOTIN
     Indication: Transitional cell carcinoma metastatic
     Dosage: UNK UNK, CYCLIC  (CYCLE 1, DAY 15).
     Route: 065

REACTIONS (3)
  - Rash erythematous [Unknown]
  - Rash [Unknown]
  - Alopecia [Unknown]
